FAERS Safety Report 19869792 (Version 5)
Quarter: 2023Q1

REPORT INFORMATION
  Report Type: Report from Study
  Country: DE (occurrence: DE)
  Receive Date: 20210922
  Receipt Date: 20230323
  Transmission Date: 20230417
  Serious: Yes (Other)
  Sender: FDA-Public Use
  Company Number: DE-002147023-NVSC2021DE094449

PATIENT
  Sex: Female
  Weight: 58 kg

DRUGS (4)
  1. LETROZOLE [Suspect]
     Active Substance: LETROZOLE
     Indication: Breast cancer metastatic
     Dosage: 2.5 MILLIGRAM, QD
     Route: 048
     Dates: start: 20200729
  2. KISQALI [Suspect]
     Active Substance: RIBOCICLIB
     Indication: Breast cancer metastatic
     Dosage: 600 MILLIGRAM, QD
     Route: 048
     Dates: start: 20200729, end: 20230119
  3. KISQALI [Suspect]
     Active Substance: RIBOCICLIB
     Dosage: 400MG, QD, REGIMEN 21D INTAKE, 7D PAUSE
     Route: 048
     Dates: start: 20230120
  4. IBUPROFEN [Concomitant]
     Active Substance: IBUPROFEN
     Indication: Limb discomfort
     Dosage: UNK, 200 OR 400 MG PRN
     Route: 048
     Dates: end: 20200904

REACTIONS (8)
  - Neutropenia [Not Recovered/Not Resolved]
  - Anaemia [Not Recovered/Not Resolved]
  - COVID-19 [Recovered/Resolved]
  - Pyrexia [Recovered/Resolved]
  - Pruritus [Recovered/Resolved]
  - Pain in extremity [Recovered/Resolved]
  - Non-cardiac chest pain [Not Recovered/Not Resolved]
  - Diarrhoea [Recovered/Resolved]

NARRATIVE: CASE EVENT DATE: 20200801
